FAERS Safety Report 9366794 (Version 3)
Quarter: 2013Q4

REPORT INFORMATION
  Report Type: Spontaneous
  Country: AU (occurrence: None)
  Receive Date: 20130620
  Receipt Date: 20131105
  Transmission Date: 20140711
  Serious: Yes (Hospitalization)
  Sender: FDA-Public Use
  Company Number: 2013AU001459

PATIENT
  Age: 79 Year
  Sex: Male
  Weight: 72 kg

DRUGS (5)
  1. PONATINIB (AP24534) TABLET [Suspect]
     Indication: CHRONIC MYELOID LEUKAEMIA
     Route: 048
     Dates: start: 20130109, end: 20130324
  2. PONATINIB (AP24534) TABLET [Suspect]
     Indication: CHROMOSOMAL MUTATION
     Route: 048
     Dates: start: 20130109, end: 20130324
  3. STALEVO (CARBIDOPA, ENTACAPONE, LEVODOPA) [Concomitant]
  4. CRESTOR (ROSUVASTATIN CALCIUM) [Concomitant]
  5. ASPIRIN (ACETYLSALICYLIC ACID) [Concomitant]

REACTIONS (6)
  - Delirium [None]
  - Headache [None]
  - Fatigue [None]
  - Depressed mood [None]
  - Metabolic encephalopathy [None]
  - CSF protein increased [None]
